FAERS Safety Report 16163727 (Version 1)
Quarter: 2019Q2

REPORT INFORMATION
  Report Type: Spontaneous
  Country: US (occurrence: US)
  Receive Date: 20190405
  Receipt Date: 20190405
  Transmission Date: 20190711
  Serious: No
  Sender: FDA-Public Use
  Company Number: US-TEVA-2019-US-1025575

PATIENT
  Sex: Female

DRUGS (1)
  1. DESVENLAFAXINE ACTAVIS [Suspect]
     Active Substance: DESVENLAFAXINE

REACTIONS (4)
  - Withdrawal syndrome [Unknown]
  - Product label issue [Unknown]
  - Adverse drug reaction [Unknown]
  - Fall [Unknown]
